FAERS Safety Report 9797419 (Version 1)
Quarter: 2014Q1

REPORT INFORMATION
  Report Type: Spontaneous
  Country: US (occurrence: US)
  Receive Date: 20140106
  Receipt Date: 20140106
  Transmission Date: 20141002
  Serious: No
  Sender: FDA-Public Use
  Company Number: US-009507513-1401USA001132

PATIENT
  Age: 67 Year
  Sex: Female

DRUGS (3)
  1. NASONEX [Suspect]
     Indication: HYPERSENSITIVITY
     Dosage: AEROSOL (EA) 50, 1 SPRAY IN EACH NOSTRIL ONCE A DAY AS NEEDED, PRN
     Route: 045
  2. AFRIN [Suspect]
     Dosage: UNK
  3. FLOVENT [Concomitant]

REACTIONS (4)
  - Rhinorrhoea [Not Recovered/Not Resolved]
  - Drug dose omission [Unknown]
  - Drug ineffective [Not Recovered/Not Resolved]
  - Device malfunction [Unknown]
